FAERS Safety Report 7689499-5 (Version None)
Quarter: 2011Q3

REPORT INFORMATION
  Report Type: 
  Country: None (occurrence: None)
  Receive Date: 20110817
  Receipt Date: 20110608
  Transmission Date: 20111222
  Serious: No
  Sender: FDA-Public Use
  Company Number: US-TYCO HEALTHCARE/MALLINCKRODT-T201101216

PATIENT
  Sex: Female

DRUGS (1)
  1. FENTANYL-100 [Suspect]
     Dosage: 100 UG/HR, UNK

REACTIONS (3)
  - DRUG SCREEN NEGATIVE [None]
  - DIARRHOEA [None]
  - HYPERHIDROSIS [None]
